FAERS Safety Report 8874508 (Version 1)
Quarter: 2012Q4

REPORT INFORMATION
  Report Type: 
  Country: US (occurrence: US)
  Receive Date: 20121030
  Receipt Date: 20121030
  Transmission Date: 20130627
  Serious: No
  Sender: FDA-Public Use
  Company Number: US-TEVA-366331USA

PATIENT
  Age: 43 Year
  Sex: Male
  Weight: 86.26 kg

DRUGS (1)
  1. NUVIGIL [Suspect]
     Indication: NARCOLEPSY
     Dosage: 150 Milligram Daily;
     Route: 048
     Dates: start: 20121001, end: 20121015

REACTIONS (1)
  - Drug ineffective [Not Recovered/Not Resolved]
